FAERS Safety Report 17514337 (Version 1)
Quarter: 2020Q1

REPORT INFORMATION
  Report Type: Spontaneous
  Country: US (occurrence: US)
  Receive Date: 20200309
  Receipt Date: 20200309
  Transmission Date: 20200409
  Serious: Yes (Other)
  Sender: FDA-Public Use
  Company Number: US-LEADING PHARMA LLC-US-2020LEALIT00031

PATIENT

DRUGS (5)
  1. ASPIRINE [Suspect]
     Active Substance: ASPIRIN
  2. FUROSEMIDE TABLETS USP [Suspect]
     Active Substance: FUROSEMIDE
  3. LEVOTHYROXINE. [Suspect]
     Active Substance: LEVOTHYROXINE
  4. COUMADIN [Suspect]
     Active Substance: WARFARIN SODIUM
  5. METOPROLOL. [Suspect]
     Active Substance: METOPROLOL

REACTIONS (2)
  - Gastrointestinal haemorrhage [Unknown]
  - Gastrointestinal tract mucosal pigmentation [Unknown]
